FAERS Safety Report 12425917 (Version 1)
Quarter: 2016Q2

REPORT INFORMATION
  Report Type: Spontaneous
  Country: CA (occurrence: CA)
  Receive Date: 20160601
  Receipt Date: 20160601
  Transmission Date: 20160815
  Serious: No
  Sender: FDA-Public Use
  Company Number: CA-PROMETHEUS LABORATORIES-2014PL000187

PATIENT
  Sex: Female

DRUGS (1)
  1. PROLEUKIN [Suspect]
     Active Substance: ALDESLEUKIN
     Indication: METASTATIC MALIGNANT MELANOMA
     Dosage: 0.1 ML, SEE NARRATIVE
     Route: 026
     Dates: start: 201408, end: 201411

REACTIONS (9)
  - Skin lesion [Unknown]
  - Injection site erythema [Recovered/Resolved]
  - Metastatic malignant melanoma [Unknown]
  - Headache [Unknown]
  - Malignant neoplasm progression [Unknown]
  - Fatigue [Unknown]
  - Injection site ulcer [Recovered/Resolved]
  - Malaise [Unknown]
  - Injection site discomfort [Recovered/Resolved]
